FAERS Safety Report 4482086-1 (Version None)
Quarter: 2004Q4

REPORT INFORMATION
  Report Type: 
  Country: None (occurrence: None)
  Receive Date: 20041020
  Receipt Date: 20041011
  Transmission Date: 20050328
  Serious: Yes (Hospitalization)
  Sender: FDA-Public Use
  Company Number: 2004076137

PATIENT
  Age: 77 Year
  Sex: Female

DRUGS (15)
  1. CETIRIZINE HCL [Suspect]
     Indication: URTICARIA
     Dosage: 10 MG, ORAL
     Route: 048
     Dates: start: 20040830, end: 20040903
  2. CALCIUM CARBONATE W/CALCIUM GLUCONATE (CALCIUM CARBONATE, CALCIUM GLUC [Concomitant]
  3. ETIDRONATE DISODIUM [Concomitant]
  4. NITRAZEPAM [Concomitant]
  5. ASPIRIN [Concomitant]
  6. ISOSORBIDE MONONITRATE [Concomitant]
  7. COMBIVENT [Concomitant]
  8. SALBUTAMOL (SALBUTAMOL) [Concomitant]
  9. NITROGLYCERIN [Concomitant]
  10. PARAMOL-118 (DIHYDROCODEINE BITARTRATE, PARACETAMOL) [Concomitant]
  11. DICLOFENAC DIETHYLAMINE (DICLOFENAC DIETHYLAMINE) [Concomitant]
  12. SIMVASTATIN [Concomitant]
  13. RAMIPRIL [Concomitant]
  14. BECLOMETHASONE DIPROPIONATE [Concomitant]
  15. FUROSEMIDE [Concomitant]

REACTIONS (2)
  - IDIOPATHIC THROMBOCYTOPENIC PURPURA [None]
  - VIRAL INFECTION [None]
